FAERS Safety Report 10049159 (Version 2)
Quarter: 2014Q2

REPORT INFORMATION
  Report Type: Spontaneous
  Country: JP (occurrence: JP)
  Receive Date: 20140401
  Receipt Date: 20140403
  Transmission Date: 20141212
  Serious: Yes (Other)
  Sender: FDA-Public Use
  Company Number: JP-PFIZER INC-2014089086

PATIENT
  Age: 90 Year
  Sex: Female

DRUGS (1)
  1. CELECOX [Suspect]
     Indication: POST-TRAUMATIC PAIN
     Dosage: 200 MG, DAILY
     Route: 048
     Dates: start: 20131118, end: 201401

REACTIONS (2)
  - Delirium [Recovered/Resolved]
  - Intentional product misuse [Unknown]
